FAERS Safety Report 9723131 (Version 1)
Quarter: 2013Q4

REPORT INFORMATION
  Report Type: Spontaneous
  Country: BR (occurrence: None)
  Receive Date: 20131126
  Receipt Date: 20131126
  Transmission Date: 20140711
  Serious: Yes (Hospitalization)
  Sender: FDA-Public Use
  Company Number: FK201305029

PATIENT
  Age: 70 Year
  Sex: Female

DRUGS (10)
  1. CEFTRIAXONA [Suspect]
     Indication: URINARY TRACT INFECTION
     Dosage: 2000 MG, 1 IN 1 D, INTRAVENOUS (NOT OTHERWISE SPECIFIED)
     Route: 042
     Dates: start: 20131016, end: 20131022
  2. ZOMARIST (VILDAGLIPTIN) [Concomitant]
  3. ZOFENIL [Concomitant]
  4. GLUCOBAY (ACARBOSE) [Concomitant]
  5. CAPTOPRIL LABESFAL (CAPTOPRIL) [Concomitant]
  6. ACTRAPID (INSULIN HUMAN) [Concomitant]
  7. RANITIDINA LABESFAL (RANITIDINE HYDROCHLORIDE) [Concomitant]
  8. PARACETAMOL KABI (PARACETAMOL) [Concomitant]
  9. CLORETO DE SODIO 0.9 % BRAUN (SODIUM CHLORIDE) [Concomitant]
  10. IBUPROFEN RATIOPHARM 400 MG (IBUPROFEN) [Concomitant]

REACTIONS (2)
  - Diarrhoea [None]
  - Vulvovaginal mycotic infection [None]
